FAERS Safety Report 4682970-X (Version None)
Quarter: 2005Q2

REPORT INFORMATION
  Report Type: 
  Country: None (occurrence: None)
  Receive Date: 20050602
  Receipt Date: 20050209
  Transmission Date: 20051028
  Serious: No
  Sender: FDA-Public Use
  Company Number: USA050290308

PATIENT
  Age: 46 Year
  Sex: Female

DRUGS (10)
  1. CYMBALTA [Suspect]
     Indication: DEPRESSION
     Dosage: 30 MG/3 DAY
     Dates: start: 20041217
  2. STRATTERA [Concomitant]
  3. IMIPRAMINE [Concomitant]
  4. KLONOPIN [Concomitant]
  5. HALDOL (HALOPERIDOL DECANOATE) [Concomitant]
  6. PRILOSEC (OMEPRAZOLE RATIOPHARM) [Concomitant]
  7. COGENTIN [Concomitant]
  8. ESTROGENS CONJUGATED [Concomitant]
  9. VITAMINS [Concomitant]
  10. MAGNESIUM OXIDE [Concomitant]

REACTIONS (5)
  - DIZZINESS [None]
  - DRUG INEFFECTIVE [None]
  - FALL [None]
  - PRESCRIBED OVERDOSE [None]
  - TINNITUS [None]
